FAERS Safety Report 5751796-8 (Version None)
Quarter: 2008Q2

REPORT INFORMATION
  Report Type: 
  Country: None (occurrence: None)
  Receive Date: 20080527
  Receipt Date: 20080513
  Transmission Date: 20081010
  Serious: No
  Sender: FDA-Public Use
  Company Number: US023516

PATIENT
  Sex: Male

DRUGS (1)
  1. PROVIGIL [Suspect]
     Dosage: QD ORAL
     Route: 048
     Dates: start: 20080501, end: 20080501

REACTIONS (1)
  - RASH [None]
